FAERS Safety Report 5456556-3 (Version None)
Quarter: 2007Q3

REPORT INFORMATION
  Report Type: 
  Country: None (occurrence: None)
  Receive Date: 20070918
  Receipt Date: 20070905
  Transmission Date: 20080115
  Serious: Yes (Other)
  Sender: FDA-Public Use
  Company Number: B0487162A

PATIENT
  Age: 35 Year
  Sex: Male

DRUGS (3)
  1. LAMIVUDINE [Suspect]
     Indication: HIV INFECTION
     Route: 065
     Dates: start: 20040701
  2. STAVUDINE [Suspect]
     Indication: HIV INFECTION
     Route: 065
     Dates: start: 20040701
  3. NEVIRAPINE [Suspect]
     Indication: HIV INFECTION
     Route: 065
     Dates: start: 20040701

REACTIONS (4)
  - IMMUNE RECONSTITUTION SYNDROME [None]
  - SENSORY LOSS [None]
  - SKIN LESION [None]
  - TUBERCULOID LEPROSY [None]
